FAERS Safety Report 7553394-2 (Version None)
Quarter: 2011Q2

REPORT INFORMATION
  Report Type: 
  Country: None (occurrence: None)
  Receive Date: 20110617
  Receipt Date: 20110613
  Transmission Date: 20111010
  Serious: Yes (Death, Life-Threatening, Hospitalization, Other)
  Sender: FDA-Public Use
  Company Number: US-CELGENEUS-163-CCAZA-11060133

PATIENT
  Sex: Male
  Weight: 130 kg

DRUGS (11)
  1. ZOSYN [Concomitant]
     Indication: CLOSTRIDIUM DIFFICILE COLITIS
     Dates: start: 20110501
  2. SODIUM CHLORIDE [Concomitant]
     Route: 051
  3. MIDOSTAURIN [Suspect]
     Dosage: 75 MILLIGRAM
     Route: 048
     Dates: start: 20110524, end: 20110530
  4. BLOOD TRANSFUSION [Concomitant]
     Route: 051
  5. AZACITIDINE [Suspect]
     Dosage: 75 MILLIGRAM/SQ. METER
     Route: 051
     Dates: start: 20110512, end: 20110518
  6. AZACITIDINE [Suspect]
  7. VANCOMYCIN [Concomitant]
     Indication: INFECTION
  8. FLAGYL [Concomitant]
     Indication: CLOSTRIDIUM DIFFICILE COLITIS
  9. OXYGEN [Concomitant]
     Route: 065
  10. PLATELETS [Concomitant]
     Indication: PLATELET TRANSFUSION
     Route: 065
  11. TOBRAMYCIN [Concomitant]
     Indication: INFECTION
     Dates: start: 20110501, end: 20110501

REACTIONS (4)
  - DEATH [None]
  - MOUTH HAEMORRHAGE [None]
  - INFECTION [None]
  - ACUTE MYELOID LEUKAEMIA [None]
